FAERS Safety Report 8263170-3 (Version None)
Quarter: 2012Q2

REPORT INFORMATION
  Report Type: 
  Country: None (occurrence: None)
  Receive Date: 20120405
  Receipt Date: 20120330
  Transmission Date: 20120825
  Serious: Yes (Hospitalization, Other)
  Sender: FDA-Public Use
  Company Number: DE-B.I. PHARMACEUTICALS,INC./RIDGEFIELD-2011-DE-06805DE

PATIENT
  Sex: Female
  Weight: 80 kg

DRUGS (24)
  1. AMITRIPTYLINE HCL [Concomitant]
     Dosage: 10 MG
  2. CALCIUM CARBONATE [Concomitant]
     Dosage: 1 ANZ
  3. GABAPENTIN [Concomitant]
     Dosage: 600 MG
  4. VIANI DISC [Concomitant]
     Dosage: 250/50
  5. SPIROLACTON [Concomitant]
     Dosage: 25 MG
  6. OMEPRAZOLE [Concomitant]
     Dosage: 40 MG
  7. ALENDRONIC  ACID [Concomitant]
     Dosage: 10 MG
  8. RAMIPRIL [Concomitant]
     Dosage: 2.5 MG
  9. DIGIMERCK MINOR [Concomitant]
     Dosage: 0.07 MG
  10. CITALOPRAM HYDROBROMIDE [Concomitant]
     Dosage: 20 MG
  11. NOVA TR [Concomitant]
     Dosage: 30-30-30-30
  12. TORSEMIDE [Concomitant]
     Dosage: 10 MG
  13. HYDROCHLOROTHIAZIDE [Concomitant]
     Dosage: 25 MG
  14. FENTANYL PLASTER [Concomitant]
     Dosage: EVERY 3 DAYS
  15. DIPYRONE TAB [Concomitant]
     Dosage: 20 GTT PRN.
  16. PRADAXA [Suspect]
  17. L-THYROCIN [Concomitant]
     Dosage: 100 MCG
  18. NEBIVOLOL [Concomitant]
     Dosage: 5 MG
  19. LACTULOSE [Concomitant]
     Dosage: PRN.
  20. PANOTZOL [Concomitant]
     Dosage: 40 MG
  21. HEPARIN [Concomitant]
     Dosage: 15000 U
     Route: 058
  22. PRADAXA [Suspect]
     Indication: ATRIAL FIBRILLATION
     Dosage: 220 MG
     Dates: start: 20111024, end: 20111206
  23. TORSEMIDE [Concomitant]
     Dosage: 30 MG
  24. LORAZEPAM [Concomitant]
     Dosage: 1 MG

REACTIONS (15)
  - GASTRIC CYST [None]
  - MELAENA [None]
  - UPPER GASTROINTESTINAL HAEMORRHAGE [None]
  - COMPARTMENT SYNDROME [None]
  - DIVERTICULUM INTESTINAL [None]
  - DYSPNOEA EXERTIONAL [None]
  - ANAEMIA POSTOPERATIVE [None]
  - HERNIA [None]
  - BACK PAIN [None]
  - HYPOAESTHESIA [None]
  - FATIGUE [None]
  - HAEMORRHAGE [None]
  - BLOOD CREATININE INCREASED [None]
  - HAEMARTHROSIS [None]
  - ASTHENIA [None]
